FAERS Safety Report 14983679 (Version 1)
Quarter: 2018Q2

REPORT INFORMATION
  Report Type: Spontaneous
  Country: US (occurrence: US)
  Receive Date: 20180515
  Receipt Date: 20180515
  Transmission Date: 20180711
  Serious: Yes (Hospitalization)
  Sender: FDA-Public Use
  Company Number: None

PATIENT
  Age: 51 Year
  Sex: Female

DRUGS (2)
  1. IPRATROPIUM BROMIDE 0.02% [Suspect]
     Active Substance: IPRATROPIUM BROMIDE
     Indication: ASTHMA
     Dosage: ?          OTHER FREQUENCY:Q4H;?
     Route: 055
     Dates: start: 20180424, end: 20180425
  2. IPRATROPIUM BROMIDE 0.02% [Suspect]
     Active Substance: IPRATROPIUM BROMIDE
     Indication: CHRONIC OBSTRUCTIVE PULMONARY DISEASE
     Dosage: ?          OTHER FREQUENCY:Q4H;?
     Route: 055
     Dates: start: 20180424, end: 20180425

REACTIONS (3)
  - Heart rate increased [None]
  - Arrhythmia [None]
  - Blood pressure increased [None]

NARRATIVE: CASE EVENT DATE: 20180425
